FAERS Safety Report 17366041 (Version 1)
Quarter: 2020Q1

REPORT INFORMATION
  Report Type: Spontaneous
  Country: NL (occurrence: NL)
  Receive Date: 20200204
  Receipt Date: 20200204
  Transmission Date: 20200409
  Serious: Yes (Other)
  Sender: FDA-Public Use
  Company Number: NL-VELOXIS PHARMACEUTICALS-2019VELNL-000759

PATIENT
  Age: 11 Year

DRUGS (5)
  1. ENVARSUS XR [Suspect]
     Active Substance: TACROLIMUS
     Indication: PYELONEPHRITIS
     Dosage: UNK
     Route: 065
  2. FLUCLOXACILLIN [Interacting]
     Active Substance: FLUCLOXACILLIN
     Indication: PYELONEPHRITIS
     Dosage: UNK
     Route: 065
  3. ENVARSUS XR [Interacting]
     Active Substance: TACROLIMUS
     Indication: IMMUNOSUPPRESSION
  4. EVEROLIMUS. [Interacting]
     Active Substance: EVEROLIMUS
     Indication: PYELONEPHRITIS
     Dosage: UNK
     Route: 065
  5. EVEROLIMUS. [Interacting]
     Active Substance: EVEROLIMUS
     Indication: IMMUNOSUPPRESSION

REACTIONS (4)
  - Off label use [Unknown]
  - Product use issue [Unknown]
  - Drug interaction [Unknown]
  - Immunosuppressant drug level decreased [Recovered/Resolved]
